FAERS Safety Report 7267814-4 (Version None)
Quarter: 2011Q1

REPORT INFORMATION
  Report Type: 
  Country: None (occurrence: None)
  Receive Date: 20110201
  Receipt Date: 20110125
  Transmission Date: 20110831
  Serious: Yes (Hospitalization)
  Sender: FDA-Public Use
  Company Number: B0689646A

PATIENT
  Sex: Female

DRUGS (3)
  1. SEREVENT [Suspect]
     Indication: ASTHMA
     Route: 055
  2. VENTOLIN [Suspect]
     Indication: ASTHMA
     Dosage: 100MCG AS REQUIRED
     Route: 055
  3. FLIXOTIDE [Suspect]
     Indication: ASTHMA
     Route: 055

REACTIONS (3)
  - PRODUCT QUALITY ISSUE [None]
  - ASTHMA [None]
  - DYSPNOEA [None]
